FAERS Safety Report 11197664 (Version 1)
Quarter: 2015Q2

REPORT INFORMATION
  Report Type: Spontaneous
  Country: PT (occurrence: PT)
  Receive Date: 20150617
  Receipt Date: 20150617
  Transmission Date: 20150821
  Serious: Yes (Hospitalization)
  Sender: FDA-Public Use
  Company Number: PT-DSJP-DSE-2015-118534

PATIENT

DRUGS (1)
  1. OLMESARTAN MEDOXOMIL; HYDROCHLOROTHIAZIDE [Suspect]
     Active Substance: HYDROCHLOROTHIAZIDE\OLMESARTAN MEDOXOMIL
     Indication: HYPERTENSION
     Route: 048

REACTIONS (4)
  - Gastrointestinal inflammation [Unknown]
  - Weight decreased [Unknown]
  - Abdominal pain [Unknown]
  - Diarrhoea [Unknown]
